FAERS Safety Report 16250456 (Version 1)
Quarter: 2019Q2

REPORT INFORMATION
  Report Type: Spontaneous
  Country: US (occurrence: US)
  Receive Date: 20190325
  Receipt Date: 20190325
  Transmission Date: 20190711
  Serious: Yes (Hospitalization)
  Sender: FDA-Public Use
  Company Number: None

PATIENT
  Sex: Female

DRUGS (18)
  1. NITROFURANTIN [Concomitant]
     Active Substance: NITROFURANTOIN
  2. BENZONATATE. [Concomitant]
     Active Substance: BENZONATATE
  3. SMOOTH LAX POW [Concomitant]
  4. RANITIDINE. [Concomitant]
     Active Substance: RANITIDINE
  5. FOLIC ACID. [Concomitant]
     Active Substance: FOLIC ACID
  6. DICLOFENAC [Concomitant]
     Active Substance: DICLOFENAC
  7. TRIAMCINOLON [Concomitant]
  8. LOW-OGASTREL TAB [Concomitant]
  9. AMOX/K CLAV [Concomitant]
     Active Substance: AMOXICILLIN\CLAVULANATE POTASSIUM
  10. NORETHINDRON [Concomitant]
  11. OXYCODONE [Concomitant]
     Active Substance: OXYCODONE
  12. TRAMADOL HCL [Concomitant]
     Active Substance: TRAMADOL HYDROCHLORIDE
  13. FLUCONAZOLE. [Concomitant]
     Active Substance: FLUCONAZOLE
  14. METHOTREXATE. [Concomitant]
     Active Substance: METHOTREXATE
  15. OMEPRAZOLE. [Concomitant]
     Active Substance: OMEPRAZOLE
  16. HUMIRA [Suspect]
     Active Substance: ADALIMUMAB
     Indication: RHEUMATOID ARTHRITIS
     Dosage: ?          OTHER DOSE:40 MG /0.8ML;OTHER FREQUENCY:EVERY 2 WEEKS;?
     Route: 058
     Dates: start: 20180126
  17. AZITHROMYCIN ANHYDROUS. [Concomitant]
     Active Substance: AZITHROMYCIN ANHYDROUS
  18. LEVOCETIRIZI [Concomitant]

REACTIONS (2)
  - Surgery [None]
  - Post procedural infection [None]
